FAERS Safety Report 16252196 (Version 3)
Quarter: 2019Q2

REPORT INFORMATION
  Report Type: Report from Study
  Country: IE (occurrence: IE)
  Receive Date: 20190429
  Receipt Date: 20190530
  Transmission Date: 20190711
  Serious: Yes (Other)
  Sender: FDA-Public Use
  Company Number: IE-JNJFOC-20190241613

PATIENT
  Age: 48 Year
  Sex: Female

DRUGS (11)
  1. SERETIDE [Concomitant]
     Active Substance: FLUTICASONE PROPIONATE\SALMETEROL XINAFOATE
     Route: 050
  2. DELTACORTRIL [Concomitant]
     Active Substance: PREDNISOLONE
     Route: 050
  3. BUSCOPAN [Concomitant]
     Active Substance: BUTYLSCOPOLAMINE BROMIDE
     Route: 050
  4. DESUNIN [Concomitant]
     Active Substance: CHOLECALCIFEROL
     Route: 050
  5. RIFAXIMIN. [Concomitant]
     Active Substance: RIFAXIMIN
     Route: 050
  6. VITAMIN B12 [Concomitant]
     Active Substance: CYANOCOBALAMIN
     Route: 050
  7. LACTULOSE. [Concomitant]
     Active Substance: LACTULOSE
     Route: 050
  8. CHOLECALCIFEROL [Concomitant]
     Active Substance: CHOLECALCIFEROL
     Route: 050
  9. ESOMEPRAZOLE. [Concomitant]
     Active Substance: ESOMEPRAZOLE MAGNESIUM
     Route: 050
  10. VENTOLIN [Concomitant]
     Active Substance: ALBUTEROL SULFATE
     Route: 050
  11. STELARA [Suspect]
     Active Substance: USTEKINUMAB
     Indication: CROHN^S DISEASE
     Route: 058
     Dates: start: 20181119

REACTIONS (9)
  - Laryngitis [Not Recovered/Not Resolved]
  - Back pain [Not Recovered/Not Resolved]
  - Influenza like illness [Not Recovered/Not Resolved]
  - Sinusitis [Recovered/Resolved]
  - Trigger finger [Unknown]
  - Crohn^s disease [Unknown]
  - Bone pain [Not Recovered/Not Resolved]
  - Biliary colic [Not Recovered/Not Resolved]
  - Postmenopausal haemorrhage [Unknown]

NARRATIVE: CASE EVENT DATE: 201904
